FAERS Safety Report 5616485-9 (Version None)
Quarter: 2008Q1

REPORT INFORMATION
  Report Type: 
  Country: None (occurrence: None)
  Receive Date: 20080207
  Receipt Date: 20080204
  Transmission Date: 20080703
  Serious: Yes (Hospitalization)
  Sender: FDA-Public Use
  Company Number: AR-WYE-H02406608

PATIENT
  Sex: Male

DRUGS (3)
  1. RAPAMUNE [Suspect]
     Indication: HEART TRANSPLANT
     Route: 048
     Dates: start: 20030914
  2. ENALAPRIL MALEATE [Concomitant]
     Indication: HYPERTENSION
  3. METICORTEN [Concomitant]
     Indication: IMMUNOSUPPRESSANT DRUG THERAPY
     Dosage: 5 MG (FREQUENCY UNSPECIFIED)

REACTIONS (1)
  - HEART TRANSPLANT REJECTION [None]
